FAERS Safety Report 19935346 (Version 2)
Quarter: 2022Q1

REPORT INFORMATION
  Report Type: Spontaneous
  Country: US (occurrence: US)
  Receive Date: 20211008
  Receipt Date: 20220224
  Transmission Date: 20220424
  Serious: No
  Sender: FDA-Public Use
  Company Number: US-SA-SAC20211004000595

PATIENT
  Age: 57 Year
  Sex: Female

DRUGS (18)
  1. DUPIXENT [Suspect]
     Active Substance: DUPILUMAB
     Indication: Asthma
     Dosage: 300 MG, QOW
     Route: 058
  2. CELLCEPT [Concomitant]
     Active Substance: MYCOPHENOLATE MOFETIL
  3. ALBUTEROL [Concomitant]
     Active Substance: ALBUTEROL
  4. BUDESONIDE [Concomitant]
     Active Substance: BUDESONIDE
  5. BUPROPION [Concomitant]
     Active Substance: BUPROPION
  6. CEFDINIR [Concomitant]
     Active Substance: CEFDINIR
  7. COLCHICINE [Concomitant]
     Active Substance: COLCHICINE
  8. DICLOFENAC [Concomitant]
     Active Substance: DICLOFENAC
     Dosage: 75 G
  9. HYDROCODONE [Concomitant]
     Active Substance: HYDROCODONE
  10. NYSTATIN [Concomitant]
     Active Substance: NYSTATIN
  11. PROMETHAZINE [Concomitant]
     Active Substance: PROMETHAZINE HYDROCHLORIDE
  12. STIOLTO RESPIMAT [Concomitant]
     Active Substance: OLODATEROL HYDROCHLORIDE\TIOTROPIUM BROMIDE MONOHYDRATE
     Dosage: AER 2.5-2.5M
  13. TIZANIDINE [Concomitant]
     Active Substance: TIZANIDINE
  14. VENTOLIN HFA [Concomitant]
     Active Substance: ALBUTEROL SULFATE
  15. ACETAMINOPHEN [Concomitant]
     Active Substance: ACETAMINOPHEN
  16. CHLORZOXAZONE [Concomitant]
     Active Substance: CHLORZOXAZONE
  17. LEVOCETIRIZINE [Concomitant]
     Active Substance: LEVOCETIRIZINE
  18. NORTRIPTYLINE [Concomitant]
     Active Substance: NORTRIPTYLINE

REACTIONS (2)
  - Injection site pain [Unknown]
  - Product dose omission in error [Unknown]
